FAERS Safety Report 8581624-7 (Version None)
Quarter: 2012Q3

REPORT INFORMATION
  Report Type: 
  Country: None (occurrence: None)
  Receive Date: 20120809
  Receipt Date: 20120731
  Transmission Date: 20120928
  Serious: Yes (Death, Hospitalization, Other)
  Sender: FDA-Public Use
  Company Number: JP-PFIZER INC-2010030861

PATIENT
  Age: 68 Year
  Sex: Female
  Weight: 41 kg

DRUGS (8)
  1. IRINOTECAN HYDROCHLORIDE [Suspect]
     Indication: COLORECTAL CANCER
     Dosage: 150 MG/M2, (195 MG/BODY)
     Route: 041
     Dates: start: 20091027, end: 20091027
  2. SINSERON [Concomitant]
     Dosage: UNK
     Dates: start: 20091028, end: 20091030
  3. FAMOTIDINE [Concomitant]
     Dosage: UNK
     Dates: start: 20091028, end: 20091030
  4. GRANISETRON [Concomitant]
     Dosage: UNK
     Dates: start: 20091027, end: 20091027
  5. LEVOFOLINATE CALCIUM [Concomitant]
     Indication: COLORECTAL CANCER
     Dosage: 200 MG/M2 (260 MG/BODY)
     Route: 041
     Dates: start: 20091027, end: 20091027
  6. FLUOROURACIL [Concomitant]
     Indication: COLORECTAL CANCER
     Dosage: 2400 MG/M2 (3120 MG/BODY)
     Route: 041
     Dates: start: 20091027, end: 20091027
  7. DECADRON PHOSPHATE [Concomitant]
     Dosage: UNK
     Dates: start: 20091027, end: 20091027
  8. AVASTIN [Concomitant]
     Indication: COLORECTAL CANCER
     Dosage: 200 MG/BODY
     Route: 041
     Dates: start: 20091027, end: 20091027

REACTIONS (16)
  - PNEUMONIA ASPIRATION [None]
  - BLOOD ALBUMIN DECREASED [None]
  - MALAISE [None]
  - DECREASED APPETITE [None]
  - HAEMOGLOBIN DECREASED [None]
  - INTESTINAL OBSTRUCTION [None]
  - MUCOSAL INFLAMMATION [None]
  - LEUKOPENIA [None]
  - ASPARTATE AMINOTRANSFERASE INCREASED [None]
  - ALANINE AMINOTRANSFERASE INCREASED [None]
  - NAUSEA [None]
  - LYMPHOCYTE PERCENTAGE DECREASED [None]
  - ABDOMINAL PAIN [None]
  - BLOOD CREATININE INCREASED [None]
  - BLOOD POTASSIUM INCREASED [None]
  - VOMITING [None]
